FAERS Safety Report 17366853 (Version 3)
Quarter: 2021Q2

REPORT INFORMATION
  Report Type: Report from Study
  Country: CO (occurrence: CO)
  Receive Date: 20200204
  Receipt Date: 20210513
  Transmission Date: 20210716
  Serious: Yes (Other)
  Sender: FDA-Public Use
  Company Number: CO-JNJFOC-20200142965

PATIENT
  Sex: Male
  Weight: 81 kg

DRUGS (6)
  1. ASPRIN [Concomitant]
     Active Substance: ASPIRIN
  2. IRBESARTAN. [Concomitant]
     Active Substance: IRBESARTAN
  3. CALCITRIOL. [Concomitant]
     Active Substance: CALCITRIOL
  4. ALOPURINOL [Concomitant]
     Active Substance: ALLOPURINOL
  5. SIMPONI [Suspect]
     Active Substance: GOLIMUMAB
     Indication: ANKYLOSING SPONDYLITIS
     Route: 058
     Dates: start: 20180505, end: 20180505
  6. SIMPONI [Suspect]
     Active Substance: GOLIMUMAB
     Route: 058
     Dates: start: 20181106

REACTIONS (2)
  - Urinary tract infection [Recovered/Resolved]
  - Proteinuria [Recovered/Resolved]

NARRATIVE: CASE EVENT DATE: 2019
